FAERS Safety Report 13196141 (Version 1)
Quarter: 2017Q1

REPORT INFORMATION
  Report Type: Spontaneous
  Country: GB (occurrence: GB)
  Receive Date: 20170208
  Receipt Date: 20170208
  Transmission Date: 20170428
  Serious: Yes (Other)
  Sender: FDA-Public Use
  Company Number: GB-JNJFOC-20170125843

PATIENT
  Age: 8 Week
  Sex: Female
  Weight: 4.52 kg

DRUGS (4)
  1. CALPOL [Suspect]
     Active Substance: ACETAMINOPHEN
     Indication: PRODUCT USED FOR UNKNOWN INDICATION
     Route: 065
     Dates: start: 20170118, end: 20170118
  2. ROTARIX [Suspect]
     Active Substance: HUMAN ROTAVIRUS A TYPE G1P(8) STRAIN RIX4414 LIVE ANTIGEN
     Indication: PRODUCT USED FOR UNKNOWN INDICATION
     Dosage: 1.5 DOSE (UNIT UNSPECIFIED) AT UNSPECIFIED FREQUENCY
     Route: 048
     Dates: start: 20170118, end: 20170118
  3. INFANRIX IPV+HIB [Suspect]
     Active Substance: DIPHTHERIA AND TETANUS TOXOIDS AND ACELLULAR PERTUSSIS ADSORBED, INACTIVATED POLIOVIRUS AND HAEMOPHILUS B CONJUGATE (TETANUS TOXOID CONJUGATE) VACCINE
     Indication: PRODUCT USED FOR UNKNOWN INDICATION
     Dosage: 0.5 DOSE (UNIT UNSPECIFIED) AT UNSPECIFIED FREQUENCY
     Route: 065
     Dates: start: 20170118, end: 20170118
  4. PREVNAR 13 [Suspect]
     Active Substance: PNEUMOCOCCAL 13-VALENT CONJUGATE VACCINE
     Indication: PRODUCT USED FOR UNKNOWN INDICATION
     Dosage: 0.5 DOSE (UNIT UNSPECIFIED) AT UNSPECIFIED FREQUENCY
     Route: 065
     Dates: start: 20170118, end: 20170118

REACTIONS (3)
  - Unresponsive to stimuli [Unknown]
  - Adverse event following immunisation [Recovering/Resolving]
  - Oxygen saturation decreased [Unknown]

NARRATIVE: CASE EVENT DATE: 20170118
